FAERS Safety Report 7442614-0 (Version None)
Quarter: 2011Q2

REPORT INFORMATION
  Report Type: 
  Country: None (occurrence: None)
  Receive Date: 20110426
  Receipt Date: 20110426
  Transmission Date: 20111010
  Serious: Yes (Hospitalization)
  Sender: FDA-Public Use
  Company Number: None

PATIENT
  Sex: Female
  Weight: 102.06 kg

DRUGS (2)
  1. TAXOL [Suspect]
     Dosage: 350 MG
     Dates: end: 20110401
  2. CISPLATIN [Suspect]
     Dosage: 100 MG
     Dates: end: 20110401

REACTIONS (4)
  - PLEURAL EFFUSION [None]
  - PLEURAL FIBROSIS [None]
  - PULMONARY EMBOLISM [None]
  - HYPOXIA [None]
